FAERS Safety Report 25272427 (Version 1)
Quarter: 2025Q2

REPORT INFORMATION
  Report Type: Spontaneous
  Country: US (occurrence: US)
  Receive Date: 20250506
  Receipt Date: 20250506
  Transmission Date: 20250716
  Serious: No
  Sender: QOL
  Company Number: US-QOL Medical, LLC-2176183

PATIENT
  Age: 53 Year
  Sex: Female
  Weight: 74.091 kg

DRUGS (5)
  1. SUCRAID [Suspect]
     Active Substance: SACROSIDASE
     Dates: start: 20240314
  2. SYNTHROID [Concomitant]
     Active Substance: LEVOTHYROXINE SODIUM
  3. LEXAPRO [Concomitant]
     Active Substance: ESCITALOPRAM OXALATE
  4. PROGESTERONE [Concomitant]
     Active Substance: PROGESTERONE
  5. ESTROGENS [Concomitant]
     Active Substance: ESTROGENS

REACTIONS (1)
  - Pollakiuria [Not Recovered/Not Resolved]

NARRATIVE: CASE EVENT DATE: 20240320
